FAERS Safety Report 23492476 (Version 1)
Quarter: 2024Q1

REPORT INFORMATION
  Report Type: Report from Study
  Country: US (occurrence: US)
  Receive Date: 20240207
  Receipt Date: 20240207
  Transmission Date: 20240410
  Serious: No
  Sender: FDA-Public Use
  Company Number: US-ORG100014127-2022000123

PATIENT
  Age: 60 Year
  Sex: Female

DRUGS (20)
  1. LYSODREN [Suspect]
     Active Substance: MITOTANE
     Indication: Adrenal gland cancer
     Dosage: STARTED WITH 1 TABLET TWICE DAILY, DOSE WAS INCREASED UP TO 3 TABLETS TWICE DAILY
     Route: 048
     Dates: start: 20211206
  2. LYSODREN [Suspect]
     Active Substance: MITOTANE
     Indication: Adrenal gland cancer
     Dosage: 3 TABLETS A DAY
     Route: 048
  3. LYSODREN [Suspect]
     Active Substance: MITOTANE
     Indication: Adrenal gland cancer
     Dosage: 5 TABLETS DAILY
     Route: 048
     Dates: end: 20230214
  4. LYSODREN [Suspect]
     Active Substance: MITOTANE
     Indication: Adrenal gland cancer
     Dosage: 5 TABLETS DAILY
     Route: 048
     Dates: start: 20230216
  5. LYSODREN [Suspect]
     Active Substance: MITOTANE
     Indication: Adrenal gland cancer
     Dosage: 3 TABLETS DAILY (2 IN THE MORNING AND 1 IN THE EVENING)
     Route: 048
  6. LYSODREN [Suspect]
     Active Substance: MITOTANE
     Indication: Adrenal gland cancer
     Dosage: 5 TABLETS DAILY (2 IN THE MORNING, 2 TABLETS WITH LUNCH AND 1 WITH DINNER)
     Route: 048
  7. alprazolam Tab 0.25mg [Concomitant]
     Indication: Product used for unknown indication
  8. AMLODIPINE [Concomitant]
     Active Substance: AMLODIPINE BESYLATE
     Indication: Product used for unknown indication
  9. BACLOFEN [Concomitant]
     Active Substance: BACLOFEN
     Indication: Product used for unknown indication
  10. Gabapentin tab 600mg [Concomitant]
     Indication: Product used for unknown indication
  11. Hydrocort tab 20mg [Concomitant]
     Indication: Product used for unknown indication
  12. losartan pot tab 25mg [Concomitant]
     Indication: Product used for unknown indication
  13. ONDANSETRON [Concomitant]
     Active Substance: ONDANSETRON
     Indication: Product used for unknown indication
  14. propranolol tab 60mg [Concomitant]
     Indication: Product used for unknown indication
  15. SOLU-CORTEF [Concomitant]
     Active Substance: HYDROCORTISONE SODIUM SUCCINATE
     Indication: Product used for unknown indication
  16. labetalol hydrochloride 300mg [Concomitant]
     Indication: Product used for unknown indication
  17. LOSARTAN [Concomitant]
     Active Substance: LOSARTAN
     Indication: Product used for unknown indication
  18. EZETIMIBE [Concomitant]
     Active Substance: EZETIMIBE
     Indication: Product used for unknown indication
  19. MAGNESIUM TAB 250MG [Concomitant]
     Indication: Product used for unknown indication
  20. LOSARTAN/HCT TAB 100-12.5 [Concomitant]
     Indication: Product used for unknown indication

REACTIONS (4)
  - Blood blister [Not Recovered/Not Resolved]
  - Malaise [Unknown]
  - Nausea [Recovered/Resolved]
  - Fatigue [Not Recovered/Not Resolved]

NARRATIVE: CASE EVENT DATE: 20221230
